FAERS Safety Report 22294626 (Version 2)
Quarter: 2023Q2

REPORT INFORMATION
  Report Type: Spontaneous
  Country: US (occurrence: PA)
  Receive Date: 20230508
  Receipt Date: 20230519
  Transmission Date: 20230721
  Serious: Yes (Death)
  Sender: FDA-Public Use
  Company Number: 2023A106271

PATIENT
  Age: 78 Year
  Sex: Male
  Weight: 84.4 kg

DRUGS (1)
  1. IMFINZI [Suspect]
     Active Substance: DURVALUMAB
     Indication: Lung carcinoma cell type unspecified stage 0
     Route: 042
     Dates: start: 20221216, end: 20230303

REACTIONS (1)
  - Radiation pneumonitis [Fatal]
